FAERS Safety Report 10365983 (Version 1)
Quarter: 2014Q3

REPORT INFORMATION
  Report Type: Spontaneous
  Country: US (occurrence: None)
  Receive Date: 20140805
  Receipt Date: 20140805
  Transmission Date: 20150326
  Serious: Yes (Other)
  Sender: FDA-Public Use
  Company Number: None

PATIENT
  Age: 71 Year
  Sex: Female
  Weight: 49.44 kg

DRUGS (7)
  1. RECLAST [Suspect]
     Active Substance: ZOLEDRONIC ACID
     Indication: OSTEOPENIA
     Route: 042
     Dates: start: 20140724, end: 20140724
  2. CENTRUM [Concomitant]
     Active Substance: VITAMINS
  3. CALCIUM [Concomitant]
     Active Substance: CALCIUM
  4. VITAMIN D [Concomitant]
     Active Substance: CHOLECALCIFEROL
  5. METROPOLOL [Concomitant]
     Active Substance: METOPROLOL
  6. ALTACE [Concomitant]
     Active Substance: RAMIPRIL
  7. SIMVASTATIN. [Concomitant]
     Active Substance: SIMVASTATIN

REACTIONS (9)
  - Nausea [None]
  - Bone pain [None]
  - Myalgia [None]
  - Vomiting [None]
  - Eye pain [None]
  - Decreased appetite [None]
  - Ocular hyperaemia [None]
  - Vision blurred [None]
  - Lethargy [None]

NARRATIVE: CASE EVENT DATE: 20140724
